FAERS Safety Report 8813572 (Version 1)
Quarter: 2012Q4

REPORT INFORMATION
  Report Type: 
  Country: US (occurrence: US)
  Receive Date: 20120927
  Receipt Date: 20120927
  Transmission Date: 20130627
  Serious: No
  Sender: FDA-Public Use
  Company Number: US-AMGEN-USASP2012042035

PATIENT
  Age: 78 Year
  Sex: Female
  Weight: 54 kg

DRUGS (9)
  1. PROLIA [Suspect]
     Indication: OSTEOPOROSIS POSTMENOPAUSAL
     Dosage: 60 mg, q6mo
     Route: 058
     Dates: start: 20120112
  2. ACYCLOVIR [Concomitant]
     Dosage: 200 mg, q4h
     Route: 048
  3. AMITRIPTYLINE [Concomitant]
     Dosage: 10 mg, prn
     Route: 048
  4. CALCIUM CARBONATE AND VITAMIN D [Concomitant]
     Dosage: 500 mg, qd
     Route: 048
  5. HYDROCHLOROTHIAZIDE [Concomitant]
     Dosage: 25 mg, qd
     Route: 048
  6. MULTIVITAMIN [Concomitant]
  7. REMERON [Concomitant]
     Dosage: 30 mg, qd
     Route: 048
  8. SYNTHROID [Concomitant]
     Dosage: 75 mug, qd
     Route: 048
  9. VITAMIN D3 [Concomitant]
     Dosage: 1000 IU, bid
     Route: 048

REACTIONS (1)
  - Arthralgia [Not Recovered/Not Resolved]
